FAERS Safety Report 13690437 (Version 1)
Quarter: 2017Q2

REPORT INFORMATION
  Report Type: Report from Study
  Country: US (occurrence: US)
  Receive Date: 20170626
  Receipt Date: 20170626
  Transmission Date: 20170830
  Serious: Yes (Other)
  Sender: FDA-Public Use
  Company Number: US-PFIZER INC-2017049360

PATIENT
  Age: 55 Year
  Sex: Female

DRUGS (2)
  1. IBRANCE [Suspect]
     Active Substance: PALBOCICLIB
     Indication: BREAST CANCER
     Dosage: 125 MG, 1X/DAY
     Route: 048
     Dates: start: 20170130, end: 2017
  2. IBRANCE [Suspect]
     Active Substance: PALBOCICLIB
     Dosage: 125 MG, 1X/DAY
     Route: 048
     Dates: start: 20170505

REACTIONS (13)
  - Skin fissures [Unknown]
  - Skin exfoliation [Unknown]
  - Back pain [Unknown]
  - Pain in extremity [Unknown]
  - Intentional dose omission [Unknown]
  - Hypoaesthesia [Unknown]
  - Constipation [Not Recovered/Not Resolved]
  - Memory impairment [Unknown]
  - Abdominal pain [Unknown]
  - Fatigue [Not Recovered/Not Resolved]
  - Palmar-plantar erythrodysaesthesia syndrome [Unknown]
  - Neoplasm progression [Unknown]
  - White blood cell count decreased [Not Recovered/Not Resolved]

NARRATIVE: CASE EVENT DATE: 20170328
